FAERS Safety Report 21780006 (Version 2)
Quarter: 2023Q2

REPORT INFORMATION
  Report Type: Spontaneous
  Country: US (occurrence: US)
  Receive Date: 20221226
  Receipt Date: 20230403
  Transmission Date: 20230721
  Serious: No
  Sender: FDA-Public Use
  Company Number: US-ABBVIE-4226354

PATIENT
  Sex: Female
  Weight: 58.059 kg

DRUGS (2)
  1. DUOPA [Suspect]
     Active Substance: CARBIDOPA\LEVODOPA
     Indication: Parkinson^s disease
     Dosage: THE ONSET DATE FOR THE EVENT  STOMA SITE BLEEDING WAS NOV 2022 AND CESSATION DATE WAS 2022, NOT M...
     Route: 050
     Dates: start: 20221104
  2. DUOPA [Suspect]
     Active Substance: CARBIDOPA\LEVODOPA

REACTIONS (2)
  - Stoma site haemorrhage [Recovered/Resolved]
  - Device loosening [Not Recovered/Not Resolved]
